FAERS Safety Report 8475233-8 (Version None)
Quarter: 2012Q2

REPORT INFORMATION
  Report Type: 
  Country: None (occurrence: None)
  Receive Date: 20120628
  Receipt Date: 20120621
  Transmission Date: 20120825
  Serious: Yes (Other)
  Sender: FDA-Public Use
  Company Number: SE-BAYER-2012-061310

PATIENT
  Sex: Female

DRUGS (1)
  1. MIRENA [Suspect]
     Dosage: UNK
     Dates: end: 20120620

REACTIONS (1)
  - AUTONOMIC NEUROPATHY [None]
